FAERS Safety Report 5069875-X (Version None)
Quarter: 2006Q3

REPORT INFORMATION
  Report Type: 
  Country: None (occurrence: None)
  Receive Date: 20060725
  Receipt Date: 20060710
  Transmission Date: 20061208
  Serious: Yes (Other)
  Sender: FDA-Public Use
  Company Number: 2006BH011708

PATIENT
  Age: 8 Year
  Sex: Male

DRUGS (1)
  1. RECOMBINATE [Suspect]
     Indication: FACTOR VIII DEFICIENCY
     Dosage: AS NEEDED
     Dates: start: 20010322, end: 20041201

REACTIONS (1)
  - FACTOR VIII INHIBITION [None]
